FAERS Safety Report 6647352-X (Version None)
Quarter: 2010Q1

REPORT INFORMATION
  Report Type: 
  Country: None (occurrence: None)
  Receive Date: 20100323
  Receipt Date: 20100315
  Transmission Date: 20100710
  Serious: Yes (Hospitalization)
  Sender: FDA-Public Use
  Company Number: B0642034A

PATIENT
  Sex: Male

DRUGS (1)
  1. CLAVULIN [Suspect]
     Dosage: 1G PER DAY
     Route: 048
     Dates: start: 20100302, end: 20100302

REACTIONS (1)
  - ANAPHYLACTIC SHOCK [None]
